FAERS Safety Report 6978122-0 (Version None)
Quarter: 2010Q3

REPORT INFORMATION
  Report Type: 
  Country: None (occurrence: None)
  Receive Date: 20100913
  Receipt Date: 20100901
  Transmission Date: 20110219
  Serious: Yes (Hospitalization)
  Sender: FDA-Public Use
  Company Number: US-BAYER-201018868NA

PATIENT
  Age: 32 Year
  Sex: Female
  Weight: 68 kg

DRUGS (9)
  1. YASMIN [Suspect]
     Indication: PRODUCT USED FOR UNKNOWN INDICATION
     Route: 048
     Dates: start: 20070401
  2. YAZ [Suspect]
     Indication: PREMENSTRUAL SYNDROME
     Route: 048
     Dates: start: 20070401, end: 20090901
  3. ALEVE (CAPLET) [Concomitant]
  4. AMERGE [Concomitant]
  5. IMITREX [Concomitant]
  6. ANTIBIOTICS [Concomitant]
  7. LANTUS [Concomitant]
  8. NOVOLOG [Concomitant]
  9. DARVOCET [Concomitant]
     Indication: PAIN

REACTIONS (3)
  - ABDOMINAL PAIN UPPER [None]
  - CHOLECYSTITIS [None]
  - NAUSEA [None]
